FAERS Safety Report 18756603 (Version 1)
Quarter: 2021Q1

REPORT INFORMATION
  Report Type: Spontaneous
  Country: US (occurrence: US)
  Receive Date: 20210118
  Receipt Date: 20210118
  Transmission Date: 20210419
  Serious: Yes (Hospitalization, Other)
  Sender: FDA-Public Use
  Company Number: None

PATIENT
  Age: 77 Year
  Sex: Male

DRUGS (2)
  1. N/A [Concomitant]
     Active Substance: UNSPECIFIED INGREDIENT
  2. VYNDAMAX [Suspect]
     Active Substance: TAFAMIDIS
     Indication: AMYLOIDOSIS SENILE
     Route: 048
     Dates: start: 20200629

REACTIONS (3)
  - SARS-CoV-2 test [None]
  - Asthenia [None]
  - Therapy interrupted [None]

NARRATIVE: CASE EVENT DATE: 20201226
